FAERS Safety Report 20544808 (Version 1)
Quarter: 2022Q1

REPORT INFORMATION
  Report Type: Spontaneous
  Country: US (occurrence: US)
  Receive Date: 20220303
  Receipt Date: 20220303
  Transmission Date: 20220423
  Serious: No
  Sender: FDA-Public Use
  Company Number: US-AMGEN-USASP2022036010

PATIENT
  Sex: Male

DRUGS (1)
  1. CORLANOR [Suspect]
     Active Substance: IVABRADINE HYDROCHLORIDE
     Indication: Heart rate increased
     Dosage: 5 MILLIGRAM, BID
     Route: 065

REACTIONS (11)
  - Anxiety [Unknown]
  - Heart rate increased [Unknown]
  - Extrasystoles [Unknown]
  - Heart rate abnormal [Unknown]
  - Respiratory disorder [Unknown]
  - Dyspnoea [Unknown]
  - Dizziness [Unknown]
  - Somnolence [Unknown]
  - Chest pain [Unknown]
  - Fatigue [Unknown]
  - Blood pressure increased [Unknown]
